FAERS Safety Report 11533851 (Version 4)
Quarter: 2016Q3

REPORT INFORMATION
  Report Type: Report from Study
  Country: DE (occurrence: DE)
  Receive Date: 20150922
  Receipt Date: 20160714
  Transmission Date: 20161109
  Serious: Yes (Other)
  Sender: FDA-Public Use
  Company Number: DE-ROCHE-1636240

PATIENT
  Sex: Female

DRUGS (12)
  1. NEBIVOLOL. [Concomitant]
     Active Substance: NEBIVOLOL
  2. FENTANYL. [Concomitant]
     Active Substance: FENTANYL
  3. LYRICA [Concomitant]
     Active Substance: PREGABALIN
  4. LODOTRA [Concomitant]
     Active Substance: PREDNISONE
  5. SPIRONOLACTON [Concomitant]
     Active Substance: SPIRONOLACTONE
  6. CORTISONE [Concomitant]
     Active Substance: CORTISONE\HYDROCORTISONE
     Indication: RHEUMATOID ARTHRITIS
  7. ROACTEMRA [Suspect]
     Active Substance: TOCILIZUMAB
     Indication: RHEUMATOID ARTHRITIS
     Route: 058
     Dates: start: 20140801, end: 201601
  8. QUENSYL [Concomitant]
     Active Substance: HYDROXYCHLOROQUINE
  9. FRUBIASE [Concomitant]
  10. ROACTEMRA [Suspect]
     Active Substance: TOCILIZUMAB
     Route: 058
     Dates: start: 201603
  11. METHOTREXATE. [Concomitant]
     Active Substance: METHOTREXATE
     Indication: RHEUMATOID ARTHRITIS
     Route: 065
     Dates: start: 201603
  12. RAMILICH [Concomitant]
     Active Substance: RAMIPRIL

REACTIONS (9)
  - Vasculitis [Not Recovered/Not Resolved]
  - Blood triglycerides increased [Not Recovered/Not Resolved]
  - Fracture delayed union [Unknown]
  - Stress fracture [Recovering/Resolving]
  - Bronchitis bacterial [Recovered/Resolved]
  - Magnesium deficiency [Not Recovered/Not Resolved]
  - Hyperhidrosis [Recovering/Resolving]
  - Fatigue [Not Recovered/Not Resolved]
  - Feeling abnormal [Not Recovered/Not Resolved]

NARRATIVE: CASE EVENT DATE: 201601
